FAERS Safety Report 23602833 (Version 1)
Quarter: 2024Q1

REPORT INFORMATION
  Report Type: Report from Study
  Country: TR (occurrence: TR)
  Receive Date: 20240306
  Receipt Date: 20240306
  Transmission Date: 20240409
  Serious: No
  Sender: FDA-Public Use
  Company Number: TR-SANDOZ-SDZ2023TR011432

PATIENT
  Age: 14 Year
  Sex: Male
  Weight: 40 kg

DRUGS (2)
  1. OMNITROPE [Suspect]
     Active Substance: SOMATROPIN
     Indication: Growth hormone deficiency
     Dosage: 10 MG (30 IU)/1.5 ML, 7 PER WEEK
     Route: 058
     Dates: start: 20230214
  2. OMNITROPE [Suspect]
     Active Substance: SOMATROPIN
     Indication: Growth hormone deficiency
     Dosage: 10 MG (30 IU)/1.5 ML, 7 PER WEEK
     Route: 058
     Dates: start: 20230214

REACTIONS (2)
  - Device mechanical issue [Unknown]
  - Drug dose omission by device [Unknown]

NARRATIVE: CASE EVENT DATE: 20230721
